FAERS Safety Report 7521327-0 (Version None)
Quarter: 2011Q2

REPORT INFORMATION
  Report Type: 
  Country: None (occurrence: None)
  Receive Date: 20110603
  Receipt Date: 20101221
  Transmission Date: 20111010
  Serious: Yes (Other)
  Sender: FDA-Public Use
  Company Number: KR-BAYER-2010-006119

PATIENT
  Sex: Female

DRUGS (1)
  1. MIRENA [Suspect]
     Dosage: UNK
     Route: 067
     Dates: start: 20100101, end: 20100101

REACTIONS (3)
  - DEVICE DIFFICULT TO USE [None]
  - DIZZINESS [None]
  - BLOOD PRESSURE DECREASED [None]
